FAERS Safety Report 14496651 (Version 4)
Quarter: 2018Q2

REPORT INFORMATION
  Report Type: Report from Study
  Country: US (occurrence: US)
  Receive Date: 20180207
  Receipt Date: 20180402
  Transmission Date: 20180711
  Serious: Yes (Other)
  Sender: FDA-Public Use
  Company Number: PHEH2018US004555

PATIENT
  Age: 83 Year
  Sex: Female

DRUGS (1)
  1. TEGRETOL XR [Suspect]
     Active Substance: CARBAMAZEPINE
     Indication: PRODUCT USED FOR UNKNOWN INDICATION
     Route: 065

REACTIONS (6)
  - Frustration tolerance decreased [Unknown]
  - Cognitive disorder [Unknown]
  - Anxiety [Unknown]
  - Dementia [Unknown]
  - Feeling abnormal [Unknown]
  - Nervousness [Unknown]

NARRATIVE: CASE EVENT DATE: 20180201
